FAERS Safety Report 23867520 (Version 3)
Quarter: 2024Q2

REPORT INFORMATION
  Report Type: Report from Study
  Country: US (occurrence: US)
  Receive Date: 20240517
  Receipt Date: 20240524
  Transmission Date: 20240716
  Serious: No
  Sender: FDA-Public Use
  Company Number: US-SANDOZ-SDZ2024US048629

PATIENT
  Sex: Female

DRUGS (6)
  1. OMNITROPE [Suspect]
     Active Substance: SOMATROPIN
     Indication: Short stature
     Dosage: 1 MG, ONCE DAILY
     Route: 058
  2. OMNITROPE [Suspect]
     Active Substance: SOMATROPIN
     Indication: Short stature
     Dosage: 1 MG, ONCE DAILY
     Route: 058
  3. OMNITROPE [Suspect]
     Active Substance: SOMATROPIN
     Indication: Hypopituitarism
     Dosage: 10 MG, QD
     Route: 058
  4. OMNITROPE [Suspect]
     Active Substance: SOMATROPIN
     Indication: Hypopituitarism
     Dosage: 10 MG, QD
     Route: 058
  5. OMNITROPE [Suspect]
     Active Substance: SOMATROPIN
     Dosage: 15 MG, QD
     Route: 058
  6. OMNITROPE [Suspect]
     Active Substance: SOMATROPIN
     Dosage: 15 MG, QD
     Route: 058

REACTIONS (3)
  - Wrong technique in product usage process [Unknown]
  - Incorrect dosage administered [Unknown]
  - Device leakage [Not Recovered/Not Resolved]
